FAERS Safety Report 6223536-X (Version None)
Quarter: 2009Q2

REPORT INFORMATION
  Report Type: 
  Country: None (occurrence: None)
  Receive Date: 20090611
  Receipt Date: 20090605
  Transmission Date: 20091009
  Serious: Yes (Other)
  Sender: FDA-Public Use
  Company Number: US-AMGEN-STX350391

PATIENT
  Sex: Female

DRUGS (17)
  1. SENSIPAR [Suspect]
     Indication: HYPERPARATHYROIDISM SECONDARY
     Dates: start: 20090401, end: 20090501
  2. SENSIPAR [Suspect]
     Dates: start: 20090501
  3. EPOGEN [Suspect]
     Indication: DIALYSIS
  4. AMBIEN [Concomitant]
  5. ATENOLOL [Concomitant]
  6. CALCITRIOL [Concomitant]
  7. CARISOPRODOL [Concomitant]
  8. CLARINEX [Concomitant]
  9. FUROSEMIDE [Concomitant]
  10. HUMALOG [Concomitant]
  11. LANTUS [Concomitant]
  12. LEVOXYL [Concomitant]
  13. LOTENSIN [Concomitant]
  14. NORVASC [Concomitant]
  15. RENAGEL [Concomitant]
  16. SINGULAIR [Concomitant]
  17. HYDROCODONE BITARTRATE [Concomitant]

REACTIONS (3)
  - NAUSEA [None]
  - VISUAL IMPAIRMENT [None]
  - VOMITING [None]
